FAERS Safety Report 4851776-0 (Version None)
Quarter: 2005Q4

REPORT INFORMATION
  Report Type: 
  Country: None (occurrence: None)
  Receive Date: 20051213
  Receipt Date: 20051201
  Transmission Date: 20060501
  Serious: Yes (Death)
  Sender: FDA-Public Use
  Company Number: US-JNJFOC-20051200917

PATIENT
  Sex: Female
  Weight: 81.65 kg

DRUGS (7)
  1. INFLIXIMAB [Suspect]
     Indication: RHEUMATOID ARTHRITIS
     Route: 042
     Dates: start: 20010427, end: 20040701
  2. METHOTREXATE [Concomitant]
  3. METHYLPREDNISONE [Concomitant]
  4. NAPROXEN [Concomitant]
  5. SYNTHROID [Concomitant]
  6. FOLIC ACID [Concomitant]
  7. PREMARIN [Concomitant]

REACTIONS (1)
  - MYOCARDIAL INFARCTION [None]
